FAERS Safety Report 5862715-8 (Version None)
Quarter: 2008Q3

REPORT INFORMATION
  Report Type: 
  Country: None (occurrence: None)
  Receive Date: 20080827
  Receipt Date: 20080827
  Transmission Date: 20090109
  Serious: Yes (Hospitalization)
  Sender: FDA-Public Use
  Company Number: None

PATIENT
  Age: 77 Year
  Sex: Female
  Weight: 73.9363 kg

DRUGS (2)
  1. FOSAMAX [Suspect]
  2. BONIVA [Suspect]

REACTIONS (5)
  - ACCIDENT [None]
  - BONE DISORDER [None]
  - FEMUR FRACTURE [None]
  - HYPERTENSION [None]
  - OSTEOGENESIS IMPERFECTA [None]
